FAERS Safety Report 9515738 (Version 2)
Quarter: 2013Q3

REPORT INFORMATION
  Report Type: Spontaneous
  Country: US (occurrence: US)
  Receive Date: 20130911
  Receipt Date: 20130927
  Transmission Date: 20140515
  Serious: Yes (Other)
  Sender: FDA-Public Use
  Company Number: US-PFIZER INC-2013257291

PATIENT
  Age: 84 Year
  Sex: Female

DRUGS (19)
  1. SUTENT [Suspect]
     Indication: METASTATIC RENAL CELL CARCINOMA
     Dosage: 25 MG DAILY ON 28 DAYS EVERY SIX WEEKS
     Route: 048
     Dates: start: 201110
  2. SUTENT [Suspect]
     Dosage: 25 MG, CYCLIC, ONCE DAILY (4 WEEKS ON AND 3 WEEKS OFF)
     Route: 048
     Dates: start: 20130314
  3. CALCIUM + D [Concomitant]
     Dosage: UNK
  4. CITALOPRAM HYDROBROMIDE [Concomitant]
     Dosage: 10 MG, 1X/DAY
  5. COLACE [Concomitant]
     Dosage: 100 MG, 1X/DAY
  6. OXYCODONE HYDROCHLORIDE [Concomitant]
     Indication: ARTHRALGIA
     Dosage: 5 MG, AS NEEDED (PRN)
  7. PROTONIX [Concomitant]
     Dosage: UNK
  8. SYNTHROID [Concomitant]
     Dosage: 75 UG, 1X/DAY
  9. LIDODERM PATCH [Concomitant]
     Dosage: UNK
  10. LORAZEPAM [Concomitant]
     Dosage: 0.5 MG, UNK
  11. OCUVITE [Concomitant]
     Dosage: UNK
  12. PANTOPRAZOLE SODIUM [Concomitant]
     Dosage: 40 MG, 1X/DAY
  13. SINEMET [Concomitant]
     Dosage: UNK (25 -100 MG )
  14. TUMS [Concomitant]
     Dosage: 1000 MG, AS NEEDED (500 MG, 2 TABS PRN)
  15. TYLENOL [Concomitant]
     Dosage: 1000 MG, AS NEEDED (500 MG , 2 TABS PRN)
  16. VESICARE [Concomitant]
     Dosage: 5 MG, 1X/DAY
  17. LOVENOX [Concomitant]
     Dosage: 30 MG, UNK
     Route: 058
  18. AZILECT [Concomitant]
     Dosage: 1 MG, UNK
  19. XGEVA [Concomitant]
     Indication: METASTASES TO BONE

REACTIONS (3)
  - Fracture [Not Recovered/Not Resolved]
  - Fall [Not Recovered/Not Resolved]
  - Oral discomfort [Recovered/Resolved]
